FAERS Safety Report 20785609 (Version 1)
Quarter: 2022Q2

REPORT INFORMATION
  Report Type: Spontaneous
  Country: US (occurrence: None)
  Receive Date: 20220504
  Receipt Date: 20220504
  Transmission Date: 20220721
  Serious: No
  Sender: FDA-Public Use
  Company Number: US-ROCHE-2796490

PATIENT
  Sex: Female

DRUGS (3)
  1. OCREVUS [Suspect]
     Active Substance: OCRELIZUMAB
     Indication: Multiple sclerosis
     Dosage: MAXIMUM RATE OF 100 ;ONGOING: YES
     Route: 042
  2. BENADRYL [Suspect]
     Active Substance: DIPHENHYDRAMINE HYDROCHLORIDE
     Indication: Premedication
     Route: 065
  3. TYLENOL [Concomitant]
     Active Substance: ACETAMINOPHEN
     Indication: Premedication

REACTIONS (5)
  - Hypertension [Unknown]
  - Throat irritation [Unknown]
  - Skin warm [Unknown]
  - Hyperhidrosis [Unknown]
  - Therapeutic response shortened [Unknown]
